FAERS Safety Report 6168927-0 (Version None)
Quarter: 2009Q2

REPORT INFORMATION
  Report Type: 
  Country: None (occurrence: None)
  Receive Date: 20090427
  Receipt Date: 20090421
  Transmission Date: 20091009
  Serious: Yes (Hospitalization)
  Sender: FDA-Public Use
  Company Number: PHHY2009ES14877

PATIENT
  Age: 22 Year
  Sex: Female

DRUGS (1)
  1. RASILEZ [Suspect]
     Indication: HYPERTENSION
     Dosage: 150 MG/DAY
     Route: 048
     Dates: start: 20090215, end: 20090227

REACTIONS (2)
  - HEADACHE [None]
  - PARAESTHESIA [None]
